FAERS Safety Report 12993714 (Version 2)
Quarter: 2017Q1

REPORT INFORMATION
  Report Type: Spontaneous
  Country: US (occurrence: US)
  Receive Date: 20161202
  Receipt Date: 20170301
  Transmission Date: 20170428
  Serious: Yes (Hospitalization, Other)
  Sender: FDA-Public Use
  Company Number: US-JNJFOC-20161123199

PATIENT
  Age: 31 Year
  Sex: Male

DRUGS (22)
  1. RISPERDAL [Suspect]
     Active Substance: RISPERIDONE
     Indication: PSYCHOTIC DISORDER
     Dosage: IN VARYING DOSE OF 2 MG TO 4 MG
     Route: 048
     Dates: start: 200406, end: 200708
  2. RISPERDAL [Suspect]
     Active Substance: RISPERIDONE
     Indication: SCHIZOPHRENIA
     Dosage: IN VARYING DOSE OF 2 MG TO 4 MG
     Route: 048
     Dates: start: 200406, end: 200708
  3. RISPERDAL CONSTA [Suspect]
     Active Substance: RISPERIDONE
     Indication: PSYCHOTIC DISORDER
     Route: 030
     Dates: start: 201001, end: 201004
  4. RISPERDAL CONSTA [Suspect]
     Active Substance: RISPERIDONE
     Indication: PARANOIA
     Dosage: IN VARYING DOSE OF 37.5 MG TO 50 MG
     Route: 030
     Dates: end: 2014
  5. RISPERDAL [Suspect]
     Active Substance: RISPERIDONE
     Indication: PARANOIA
     Dosage: IN VARYING DOSE OF 2 MG TO 4 MG
     Route: 048
     Dates: start: 200406, end: 200708
  6. RISPERDAL CONSTA [Suspect]
     Active Substance: RISPERIDONE
     Indication: PSYCHOTIC DISORDER
     Dosage: IN VARYING DOSE OF 37.5 MG TO 50 MG
     Route: 030
     Dates: start: 2004
  7. RISPERDAL CONSTA [Suspect]
     Active Substance: RISPERIDONE
     Indication: PSYCHOTIC DISORDER
     Route: 030
     Dates: start: 200901, end: 201001
  8. RISPERDAL CONSTA [Suspect]
     Active Substance: RISPERIDONE
     Indication: SCHIZOPHRENIA
     Route: 030
     Dates: start: 200901, end: 201001
  9. RISPERDAL CONSTA [Suspect]
     Active Substance: RISPERIDONE
     Indication: SCHIZOPHRENIA
     Dosage: IN VARYING DOSE OF 37.5 MG TO 50 MG
     Route: 030
     Dates: start: 2004
  10. RISPERDAL CONSTA [Suspect]
     Active Substance: RISPERIDONE
     Indication: SCHIZOPHRENIA
     Route: 030
     Dates: start: 201005, end: 201108
  11. RISPERDAL CONSTA [Suspect]
     Active Substance: RISPERIDONE
     Indication: PARANOIA
     Route: 030
     Dates: start: 201005, end: 201108
  12. RISPERDAL CONSTA [Suspect]
     Active Substance: RISPERIDONE
     Indication: PARANOIA
     Dosage: IN VARYING DOSE OF 37.5 MG TO 50 MG
     Route: 030
     Dates: start: 2004
  13. RISPERDAL [Suspect]
     Active Substance: RISPERIDONE
     Indication: SCHIZOPHRENIA
     Dosage: IN VARYING DOSE OF 0.5 MG TO 4 MG.
     Route: 048
     Dates: end: 2014
  14. RISPERDAL [Suspect]
     Active Substance: RISPERIDONE
     Indication: PARANOIA
     Dosage: IN VARYING DOSE OF 0.5 MG TO 4 MG.
     Route: 048
     Dates: end: 2014
  15. RISPERDAL CONSTA [Suspect]
     Active Substance: RISPERIDONE
     Indication: SCHIZOPHRENIA
     Route: 030
     Dates: start: 201001, end: 201004
  16. RISPERDAL CONSTA [Suspect]
     Active Substance: RISPERIDONE
     Indication: SCHIZOPHRENIA
     Dosage: IN VARYING DOSE OF 37.5 MG TO 50 MG
     Route: 030
     Dates: end: 2014
  17. RISPERDAL [Suspect]
     Active Substance: RISPERIDONE
     Indication: PSYCHOTIC DISORDER
     Dosage: IN VARYING DOSE OF 0.5 MG TO 4 MG.
     Route: 048
     Dates: end: 2014
  18. RISPERDAL CONSTA [Suspect]
     Active Substance: RISPERIDONE
     Indication: PSYCHOTIC DISORDER
     Route: 030
     Dates: start: 201005, end: 201108
  19. RISPERDAL CONSTA [Suspect]
     Active Substance: RISPERIDONE
     Indication: PARANOIA
     Route: 030
     Dates: start: 200901, end: 201001
  20. RISPERDAL CONSTA [Suspect]
     Active Substance: RISPERIDONE
     Indication: PARANOIA
     Route: 030
     Dates: start: 201001, end: 201004
  21. RISPERDAL CONSTA [Suspect]
     Active Substance: RISPERIDONE
     Indication: PSYCHOTIC DISORDER
     Dosage: IN VARYING DOSE OF 37.5 MG TO 50 MG
     Route: 030
     Dates: end: 2014
  22. RISPERIDONE. [Suspect]
     Active Substance: RISPERIDONE
     Indication: PRODUCT USED FOR UNKNOWN INDICATION
     Route: 048

REACTIONS (3)
  - Hyperprolactinaemia [Unknown]
  - Gynaecomastia [Recovering/Resolving]
  - Obesity [Unknown]

NARRATIVE: CASE EVENT DATE: 20120119
